FAERS Safety Report 8343895-1 (Version None)
Quarter: 2012Q2

REPORT INFORMATION
  Report Type: 
  Country: None (occurrence: None)
  Receive Date: 20120508
  Receipt Date: 20100830
  Transmission Date: 20120825
  Serious: No
  Sender: FDA-Public Use
  Company Number: US-TEVA-2010004650

PATIENT
  Age: 54 Year
  Sex: Female

DRUGS (3)
  1. RITUXAN [Suspect]
  2. UNSPECIFIED DIABETIC MEDICATION [Concomitant]
  3. TREANDA [Suspect]
     Indication: B-CELL SMALL LYMPHOCYTIC LYMPHOMA
     Route: 042

REACTIONS (3)
  - WEIGHT DECREASED [None]
  - ASTHENIA [None]
  - COGNITIVE DISORDER [None]
